FAERS Safety Report 5511088-9 (Version None)
Quarter: 2007Q4

REPORT INFORMATION
  Report Type: 
  Country: None (occurrence: None)
  Receive Date: 20071107
  Receipt Date: 20071023
  Transmission Date: 20080405
  Serious: Yes (Life-Threatening, Other)
  Sender: FDA-Public Use
  Company Number: 163117ISR

PATIENT
  Age: 37 Year
  Sex: Female

DRUGS (1)
  1. SERTRALINE [Suspect]
     Indication: DEPRESSION
     Dosage: 50 MG
     Dates: start: 20061117

REACTIONS (3)
  - DRUG EXPOSURE DURING PREGNANCY [None]
  - STILLBIRTH [None]
  - VAGINAL HAEMORRHAGE [None]
